FAERS Safety Report 5006444-1 (Version None)
Quarter: 2006Q2

REPORT INFORMATION
  Report Type: 
  Country: None (occurrence: None)
  Receive Date: 20060516
  Receipt Date: 20060509
  Transmission Date: 20061013
  Serious: Yes (Other)
  Sender: FDA-Public Use
  Company Number: S06-USA-00479-01

PATIENT
  Age: 61 Year
  Sex: Female

DRUGS (12)
  1. THYROLAR-1 [Suspect]
     Indication: HYPOTHYROIDISM
     Dosage: 1 TABLET QD PO
     Route: 048
     Dates: start: 20060126, end: 20060301
  2. THYROLAR-1 [Suspect]
     Indication: HYPOTHYROIDISM
     Dosage: 1 TABLET QD PO
     Route: 048
     Dates: start: 20060325, end: 20060507
  3. THYROLAR-1 [Suspect]
     Indication: HYPOTHYROIDISM
     Dosage: 1.25 TABLET QD PO
     Route: 048
     Dates: start: 20060508
  4. THYROLAR-1 [Suspect]
     Indication: HYPOTHYROIDISM
     Dosage: 1.5 TABLET QD PO
     Route: 048
     Dates: start: 20060301, end: 20060324
  5. GRAPE SEED EXTRACT [Suspect]
     Dates: end: 20060401
  6. SPIROLACTONE (NOS) [Concomitant]
  7. ALLEGRA [Concomitant]
  8. HYDROCHLOROTHIAZIDE [Concomitant]
  9. 7-KETO (DEHYDROEPIANDROSTERONE) [Concomitant]
  10. MULTI-VITAMIN [Concomitant]
  11. CALCIUM GLUCONATE [Concomitant]
  12. MAGNESIUM SULFATE [Concomitant]

REACTIONS (5)
  - ALOPECIA [None]
  - BLOOD THYROID STIMULATING HORMONE DECREASED [None]
  - EXTRASYSTOLES [None]
  - LABORATORY TEST ABNORMAL [None]
  - PALPITATIONS [None]
